FAERS Safety Report 14422980 (Version 1)
Quarter: 2018Q1

REPORT INFORMATION
  Report Type: Spontaneous
  Country: DE (occurrence: DE)
  Receive Date: 20180123
  Receipt Date: 20180123
  Transmission Date: 20180509
  Serious: Yes (Other)
  Sender: FDA-Public Use
  Company Number: DE-009507513-1801DEU007225

PATIENT
  Age: 68 Year
  Sex: Male
  Weight: 89 kg

DRUGS (2)
  1. JANUVIA [Suspect]
     Active Substance: SITAGLIPTIN PHOSPHATE
     Indication: TYPE 2 DIABETES MELLITUS
     Dosage: 100 MG, UNK
     Route: 048
     Dates: start: 20161202
  2. JANUMET [Suspect]
     Active Substance: METFORMIN HYDROCHLORIDE\SITAGLIPTIN PHOSPHATE
     Indication: TYPE 2 DIABETES MELLITUS
     Dosage: JANUMET 2000/100 UNITS NOT PROVIDED (ALSO REPORTED AS 1 DF), UNK
     Route: 048
     Dates: start: 20161202

REACTIONS (2)
  - Abdominal pain upper [Recovered/Resolved with Sequelae]
  - Pancreatitis chronic [Recovered/Resolved with Sequelae]

NARRATIVE: CASE EVENT DATE: 20170614
